APPROVED DRUG PRODUCT: HYDROCORTISONE
Active Ingredient: HYDROCORTISONE
Strength: 2.5%
Dosage Form/Route: CREAM;TOPICAL
Application: A089754 | Product #001
Applicant: ALPHARMA US PHARMACEUTICALS DIVISION
Approved: Feb 1, 1989 | RLD: No | RS: No | Type: DISCN